FAERS Safety Report 15844606 (Version 1)
Quarter: 2019Q1

REPORT INFORMATION
  Report Type: Report from Study
  Country: US (occurrence: US)
  Receive Date: 20190118
  Receipt Date: 20190118
  Transmission Date: 20190417
  Serious: Yes (Death, Hospitalization)
  Sender: FDA-Public Use
  Company Number: US-PFIZER INC-2018481227

PATIENT
  Age: 72 Year
  Sex: Female

DRUGS (2)
  1. IBRANCE [Suspect]
     Active Substance: PALBOCICLIB
     Indication: BREAST CANCER FEMALE
     Dosage: 125 MG, CYCLIC (DAILY, DAY 1-21 OF 28 DAY CYCLE)
     Route: 048
     Dates: start: 20181114, end: 201811
  2. IBRANCE [Suspect]
     Active Substance: PALBOCICLIB
     Dosage: 125 MG, CYCLIC (DAILY, DAY 1-21 OF 28 DAY CYCLE)
     Route: 048
     Dates: start: 20181204, end: 201812

REACTIONS (11)
  - Fall [Unknown]
  - White blood cell count decreased [Unknown]
  - Fatigue [Unknown]
  - Death [Fatal]
  - Decreased appetite [Unknown]
  - Gait inability [Unknown]
  - Blood pressure decreased [Unknown]
  - Head injury [Unknown]
  - Headache [Unknown]
  - Asthenia [Unknown]
  - Blood glucose decreased [Unknown]

NARRATIVE: CASE EVENT DATE: 2018
